FAERS Safety Report 22267959 (Version 4)
Quarter: 2024Q3

REPORT INFORMATION
  Report Type: Report from Study
  Country: US (occurrence: US)
  Receive Date: 20230430
  Receipt Date: 20240920
  Transmission Date: 20241016
  Serious: No
  Sender: NOVARTIS
  Company Number: US-002147023-NVSC2023US093906

PATIENT
  Sex: Male

DRUGS (1)
  1. ENTRESTO [Suspect]
     Active Substance: SACUBITRIL\VALSARTAN
     Indication: Product used for unknown indication
     Dosage: UNK, QD (24/26MG)
     Route: 048

REACTIONS (5)
  - Heart rate increased [Unknown]
  - Muscle spasms [Unknown]
  - Back pain [Unknown]
  - Drug ineffective [Unknown]
  - Product availability issue [Unknown]
